FAERS Safety Report 6498723-6 (Version None)
Quarter: 2009Q4

REPORT INFORMATION
  Report Type: 
  Country: None (occurrence: None)
  Receive Date: 20091215
  Receipt Date: 20091215
  Transmission Date: 20100525
  Serious: Yes (Hospitalization)
  Sender: FDA-Public Use
  Company Number: US-ABBOTT-09P-163-0611168-00

PATIENT
  Sex: Female
  Weight: 63.56 kg

DRUGS (9)
  1. HUMIRA [Suspect]
     Indication: ARTHRITIS REACTIVE
     Dosage: HUMIRA PEN
     Dates: start: 20091001
  2. HUMIRA [Suspect]
     Indication: OSTEOARTHRITIS
     Dosage: HUMIRA PRE-FILLED SYRINGE
     Dates: start: 20091116
  3. HUMIRA [Suspect]
     Indication: ANKYLOSING SPONDYLITIS
  4. DEPAKOTE ER [Concomitant]
     Indication: CONVULSION
     Dates: start: 19990101
  5. PERCOCET [Concomitant]
     Indication: PAIN
     Dates: start: 20090601
  6. PREDNISONE [Concomitant]
     Indication: ARTHRITIS REACTIVE
     Dosage: DAILY TO BID
  7. CARISOPRODOL [Concomitant]
     Indication: MUSCLE DISORDER
     Dates: start: 20070101
  8. PLAVIX [Concomitant]
     Indication: STENT PLACEMENT
     Dates: start: 20060101
  9. HYDROXYCHLOROQUINE SULFATE [Concomitant]
     Indication: ARTHRITIS REACTIVE

REACTIONS (9)
  - CONVULSION [None]
  - DEPRESSION [None]
  - DIARRHOEA [None]
  - HEADACHE [None]
  - INFLUENZA [None]
  - MYALGIA [None]
  - PANIC ATTACK [None]
  - SNEEZING [None]
  - THROAT IRRITATION [None]
